FAERS Safety Report 7168011-3 (Version None)
Quarter: 2010Q4

REPORT INFORMATION
  Report Type: 
  Country: None (occurrence: None)
  Receive Date: 20101216
  Receipt Date: 20101208
  Transmission Date: 20110411
  Serious: No
  Sender: FDA-Public Use
  Company Number: US-PFIZER INC-2010167524

PATIENT
  Sex: Male
  Weight: 97.506 kg

DRUGS (21)
  1. LIPITOR [Suspect]
     Indication: BLOOD CHOLESTEROL INCREASED
     Dosage: 40 MG, 1X/DAY
     Route: 048
  2. CENTRUM SILVER [Suspect]
     Indication: MINERAL SUPPLEMENTATION
     Dosage: UNK
  3. FERGON [Suspect]
     Indication: MINERAL SUPPLEMENTATION
     Dosage: UNK
  4. ADVAIR [Concomitant]
     Indication: ASTHMA
     Dosage: UNK
  5. ALBUTEROL [Concomitant]
     Indication: ASTHMA
     Dosage: UNK
  6. ALLEGRA [Concomitant]
     Indication: HYPERSENSITIVITY
     Dosage: 60 MG, 2X/DAY
  7. ACETYLSALICYLIC ACID [Concomitant]
     Indication: PROPHYLAXIS
     Dosage: 81 MG, 1X/DAY
  8. ASTELIN [Concomitant]
     Indication: HYPERSENSITIVITY
     Dosage: UNK
  9. ATENOLOL [Concomitant]
     Indication: BLOOD PRESSURE ABNORMAL
     Dosage: 25 MG, 1X/DAY
  10. TAMSULOSIN HYDROCHLORIDE [Concomitant]
     Indication: PROSTATIC DISORDER
     Dosage: 0.4 MG, 2 PILLS, 1X/DAY
     Route: 048
  11. FLOVENT [Concomitant]
     Indication: ASTHMA
     Dosage: 50 MG, 2X/DAY
  12. GLIPIZIDE [Concomitant]
     Indication: DIABETES MELLITUS
     Dosage: 10 MG, 1X/DAY
  13. LASIX [Concomitant]
     Dosage: 20 MG, 1X/DAY
  14. LISINOPRIL [Concomitant]
     Dosage: 10 MG, 1X/DAY
  15. METFORMIN [Concomitant]
     Indication: DIABETES MELLITUS
     Dosage: 1000 MG, 2X/DAY
  16. PRILOSEC [Concomitant]
     Indication: DYSPEPSIA
     Dosage: 20 MG, 2X/DAY
  17. RHINOCORT [Concomitant]
     Indication: ASTHMA
     Dosage: UNK
  18. SINGULAIR [Concomitant]
     Indication: ASTHMA
     Dosage: 10 MG, 1X/DAY
  19. SPIRIVA [Concomitant]
     Indication: ASTHMA
     Dosage: 0.06 MG, 1X/DAY
  20. PREDNISONE [Concomitant]
     Indication: ASTHMA
     Dosage: UNK
  21. LEVAQUIN [Concomitant]
     Indication: ASTHMA
     Dosage: UNK

REACTIONS (2)
  - BLOOD IRON DECREASED [None]
  - DIARRHOEA [None]
